FAERS Safety Report 7274729-4 (Version None)
Quarter: 2011Q1

REPORT INFORMATION
  Report Type: 
  Country: None (occurrence: None)
  Receive Date: 20110204
  Receipt Date: 20110124
  Transmission Date: 20110831
  Serious: Yes (Hospitalization, Other)
  Sender: FDA-Public Use
  Company Number: US-ELI_LILLY_AND_COMPANY-US201002002446

PATIENT
  Sex: Female
  Weight: 60.317 kg

DRUGS (12)
  1. FORTEO [Suspect]
     Dosage: 20 UG, DAILY (1/D)
     Route: 065
  2. TYLENOL EXTRA STRENGTH [Concomitant]
     Indication: MUSCULOSKELETAL STIFFNESS
  3. FOLIC ACID [Concomitant]
     Dosage: UNK, DAILY (1/D)
     Route: 065
  4. CRESTOR [Concomitant]
     Dosage: UNK, DAILY (1/D)
     Route: 065
  5. VITAMIN D [Concomitant]
     Indication: OSTEOPOROSIS
     Dosage: 4000 U, UNKNOWN
     Route: 065
  6. METHOTREXATE [Concomitant]
     Dosage: UNK, DAILY (1/D)
     Route: 065
  7. ASPIRIN [Concomitant]
     Indication: ANTICOAGULANT THERAPY
  8. ATENOLOL [Concomitant]
     Indication: HYPERTENSION
  9. ARAVA [Concomitant]
  10. FORTEO [Suspect]
     Indication: OSTEOPOROSIS
     Dosage: 20 UG, DAILY (1/D)
     Route: 065
     Dates: start: 20091007
  11. CALCIUM [Concomitant]
     Indication: OSTEOPOROSIS
     Dosage: 1500 U, UNKNOWN
     Route: 065
  12. DIOVAN [Concomitant]
     Indication: HYPERTENSION

REACTIONS (6)
  - CORONARY ARTERY OCCLUSION [None]
  - FATIGUE [None]
  - GOITRE [None]
  - CHEST DISCOMFORT [None]
  - WEIGHT DECREASED [None]
  - ATRIAL FIBRILLATION [None]
